FAERS Safety Report 19427176 (Version 5)
Quarter: 2021Q4

REPORT INFORMATION
  Report Type: Report from Study
  Country: US (occurrence: US)
  Receive Date: 20210617
  Receipt Date: 20211013
  Transmission Date: 20220303
  Serious: No
  Sender: FDA-Public Use
  Company Number: NVSC2021US133157

PATIENT
  Sex: Male

DRUGS (1)
  1. ENTRESTO [Suspect]
     Active Substance: SACUBITRIL\VALSARTAN
     Indication: Product used for unknown indication
     Dosage: 50 MG, BID (24/26 MG)
     Route: 048

REACTIONS (11)
  - Weight decreased [Recovering/Resolving]
  - Weight increased [Unknown]
  - COVID-19 [Recovered/Resolved]
  - Ageusia [Recovered/Resolved]
  - Muscular weakness [Recovered/Resolved]
  - Fatigue [Recovered/Resolved]
  - Anosmia [Recovered/Resolved]
  - Dyspnoea [Recovered/Resolved]
  - Ejection fraction normal [Recovered/Resolved]
  - Blood pressure decreased [Unknown]
  - Dizziness [Recovering/Resolving]
